FAERS Safety Report 5843950-1 (Version None)
Quarter: 2008Q3

REPORT INFORMATION
  Report Type: 
  Country: None (occurrence: None)
  Receive Date: 20080731
  Receipt Date: 20080422
  Transmission Date: 20090109
  Serious: No
  Sender: FDA-Public Use
  Company Number: US200804000171

PATIENT
  Age: 56 Year
  Sex: Female
  Weight: 133.3 kg

DRUGS (13)
  1. BYETTA [Suspect]
     Indication: TYPE 2 DIABETES MELLITUS
     Dosage: 5 UG, 2/D, SUBCUTANEOUS ; 10 UG, 2/D, SUBCUTANEOUS
     Route: 058
     Dates: start: 20070801, end: 20070901
  2. BYETTA [Suspect]
     Indication: TYPE 2 DIABETES MELLITUS
     Dosage: 5 UG, 2/D, SUBCUTANEOUS ; 10 UG, 2/D, SUBCUTANEOUS
     Route: 058
     Dates: start: 20070901
  3. COZAAR [Concomitant]
  4. COREG [Concomitant]
  5. FUROSEMIDE (FUROSEMIDE) [Concomitant]
  6. FLUOXETINE [Concomitant]
  7. AVANDIA [Concomitant]
  8. SIMVASTATIN [Concomitant]
  9. PREVACID [Concomitant]
  10. LEVEMIR [Concomitant]
  11. METFORMIN HCL [Concomitant]
  12. ACCUPRIL [Concomitant]
  13. EXENATIDE PEN, DISPOSABLE DEVICE (EXENATIDE PEN)) PEN, DISPOSABLE [Concomitant]

REACTIONS (6)
  - CATARACT [None]
  - DIABETIC RETINOPATHY [None]
  - MACULOPATHY [None]
  - NAUSEA [None]
  - VOMITING [None]
  - WEIGHT DECREASED [None]
